FAERS Safety Report 25263680 (Version 3)
Quarter: 2025Q2

REPORT INFORMATION
  Report Type: Spontaneous
  Country: US (occurrence: US)
  Receive Date: 20250502
  Receipt Date: 20250519
  Transmission Date: 20250717
  Serious: Yes (Hospitalization, Other)
  Sender: PFIZER
  Company Number: US-PFIZER INC-PV202500051533

PATIENT
  Age: 69 Year
  Sex: Male

DRUGS (7)
  1. KETAMINE HYDROCHLORIDE [Suspect]
     Active Substance: KETAMINE HYDROCHLORIDE
  2. MORPHINE SULFATE [Suspect]
     Active Substance: MORPHINE SULFATE
  3. FENTANYL CITRATE [Suspect]
     Active Substance: FENTANYL CITRATE
  4. DIPHENHYDRAMINE [Suspect]
     Active Substance: DIPHENHYDRAMINE
  5. MEDETOMIDINE [Suspect]
     Active Substance: MEDETOMIDINE
  6. QUININE [Suspect]
     Active Substance: QUININE
  7. HEROIN [Suspect]
     Active Substance: DIAMORPHINE
     Dosage: 1.5 DF (BAGS), DAILY VIA INSUFFLATION

REACTIONS (2)
  - Overdose [Unknown]
  - Toxicity to various agents [Unknown]
